FAERS Safety Report 4865292-3 (Version None)
Quarter: 2005Q4

REPORT INFORMATION
  Report Type: 
  Country: None (occurrence: None)
  Receive Date: 20051221
  Receipt Date: 20051221
  Transmission Date: 20060501
  Serious: Yes (Hospitalization)
  Sender: FDA-Public Use
  Company Number: None

PATIENT
  Age: 75 Year
  Sex: Male
  Weight: 74.3899 kg

DRUGS (2)
  1. TOPOTECAN [Suspect]
     Indication: NON-SMALL CELL LUNG CANCER
     Dosage: 3.8 MG, PUMP, WEEKLY
     Dates: start: 20051010, end: 20051126
  2. RADIATION THERAPY [Suspect]
     Dates: start: 20051010, end: 20051126

REACTIONS (5)
  - CHILLS [None]
  - NEUTROPENIA [None]
  - PNEUMONIA [None]
  - PYREXIA [None]
  - RADIATION PNEUMONITIS [None]
